FAERS Safety Report 10179549 (Version 1)
Quarter: 2014Q2

REPORT INFORMATION
  Report Type: Spontaneous
  Country: US (occurrence: None)
  Receive Date: 20140425
  Receipt Date: 20140425
  Transmission Date: 20141212
  Serious: No
  Sender: FDA-Public Use
  Company Number: AP356-00518-SPO-US

PATIENT
  Age: 64 Year
  Sex: Female
  Weight: 91 kg

DRUGS (4)
  1. BELVIQ [Suspect]
     Indication: WEIGHT DECREASED
     Route: 048
     Dates: start: 201402, end: 201402
  2. OXYCODONE [Suspect]
     Indication: PAIN
     Route: 048
     Dates: start: 201402
  3. METFORMIN (METFORMIN) [Concomitant]
  4. SYNTHROID (LEVOTHYROXINE) [Concomitant]

REACTIONS (1)
  - Oedema [None]
